FAERS Safety Report 10129553 (Version 1)
Quarter: 2014Q2

REPORT INFORMATION
  Report Type: Spontaneous
  Country: US (occurrence: None)
  Receive Date: 20140425
  Receipt Date: 20140425
  Transmission Date: 20141212
  Serious: Yes (Life-Threatening, Hospitalization)
  Sender: FDA-Public Use
  Company Number: None

PATIENT
  Age: 40 Year
  Sex: Male
  Weight: 125 kg

DRUGS (4)
  1. DIETARY SUPPLEMENT [Suspect]
     Indication: DECREASED APPETITE
  2. HCG [Suspect]
  3. ALBUTEROL [Concomitant]
  4. NASAL SPRAY [Concomitant]

REACTIONS (2)
  - Pulmonary embolism [None]
  - Peripheral swelling [None]
